FAERS Safety Report 7629091-1 (Version None)
Quarter: 2011Q3

REPORT INFORMATION
  Report Type: 
  Country: None (occurrence: None)
  Receive Date: 20110722
  Receipt Date: 20110722
  Transmission Date: 20111222
  Serious: Yes (Hospitalization)
  Sender: FDA-Public Use
  Company Number: None

PATIENT
  Sex: Male
  Weight: 98 kg

DRUGS (2)
  1. VANCOMYCIN [Suspect]
     Indication: STAPHYLOCOCCAL INFECTION
  2. VANCOMYCIN [Suspect]
     Indication: SOFT TISSUE INFECTION

REACTIONS (4)
  - RASH GENERALISED [None]
  - RASH MACULO-PAPULAR [None]
  - OXYGEN SATURATION DECREASED [None]
  - SWOLLEN TONGUE [None]
